FAERS Safety Report 11003204 (Version 1)
Quarter: 2015Q2

REPORT INFORMATION
  Report Type: Spontaneous
  Country: US (occurrence: None)
  Receive Date: 20150407
  Receipt Date: 20150407
  Transmission Date: 20150821
  Serious: Yes (Death, Hospitalization)
  Sender: FDA-Public Use
  Company Number: 2015COV00073

PATIENT
  Age: 30 Year
  Sex: Female

DRUGS (1)
  1. HYDROXYCHLOROQUINE [Suspect]
     Active Substance: HYDROXYCHLOROQUINE

REACTIONS (5)
  - Toxic epidermal necrolysis [None]
  - Multi-organ failure [None]
  - Bacteraemia [None]
  - Septic shock [None]
  - Zygomycosis [None]
